FAERS Safety Report 4373654-6 (Version None)
Quarter: 2004Q1

REPORT INFORMATION
  Report Type: 
  Country: None (occurrence: None)
  Receive Date: 20040305
  Receipt Date: 20031201
  Transmission Date: 20041129
  Serious: Yes (Other)
  Sender: FDA-Public Use
  Company Number: 2003UW15777

PATIENT
  Age: 56 Year
  Sex: Female
  Weight: 56.6996 kg

DRUGS (2)
  1. CRESTOR [Suspect]
     Indication: BONE DISORDER
     Dosage: 10 MG PO
     Route: 048
     Dates: start: 20031101, end: 20031101
  2. CRESTOR [Suspect]
     Indication: SPINAL DISORDER
     Dosage: 10 MG PO
     Route: 048
     Dates: start: 20031101, end: 20031101

REACTIONS (3)
  - ARTHRALGIA [None]
  - EYE PAIN [None]
  - PAIN [None]
